FAERS Safety Report 7292667-8 (Version None)
Quarter: 2011Q1

REPORT INFORMATION
  Report Type: 
  Country: None (occurrence: None)
  Receive Date: 20110215
  Receipt Date: 20110207
  Transmission Date: 20110831
  Serious: Yes (Hospitalization, Other)
  Sender: FDA-Public Use
  Company Number: FR-CEPHALON-2010005987

PATIENT
  Sex: Male
  Weight: 65 kg

DRUGS (2)
  1. MODAFINIL [Suspect]
     Indication: HYPERSOMNIA
     Route: 048
     Dates: start: 20101026
  2. MODAFINIL [Suspect]
     Route: 048
     Dates: start: 20101128

REACTIONS (2)
  - HAEMATOCHEZIA [None]
  - DRUG PRESCRIBING ERROR [None]
